FAERS Safety Report 20263437 (Version 2)
Quarter: 2022Q1

REPORT INFORMATION
  Report Type: Spontaneous
  Country: HU (occurrence: HU)
  Receive Date: 20211231
  Receipt Date: 20220110
  Transmission Date: 20220423
  Serious: Yes (Hospitalization, Disabling, Other)
  Sender: FDA-Public Use
  Company Number: HU-009507513-2112HUN008402

PATIENT
  Age: 12 Year
  Sex: Male

DRUGS (2)
  1. M-M-RVAXPRO [Suspect]
     Active Substance: MEASLES VIRUS STRAIN ENDERS^ ATTENUATED EDMONSTON LIVE ANTIGEN\MUMPS VIRUS STRAIN B LEVEL JERYL LYNN
     Indication: Immunisation
     Dosage: .5 MILLILITER
     Dates: start: 20210928
  2. STERILE DILUENT (WATER) [Suspect]
     Active Substance: WATER
     Dosage: UNK

REACTIONS (13)
  - Mobility decreased [Not Recovered/Not Resolved]
  - Lymphadenitis [Unknown]
  - Asthenia [Recovered/Resolved]
  - Viral diarrhoea [Recovered/Resolved]
  - Muscular weakness [Recovered/Resolved]
  - Ataxia [Unknown]
  - Viral infection [Unknown]
  - Enteritis [Unknown]
  - Myelitis [Unknown]
  - Constipation [Recovered/Resolved]
  - Anxiety [Not Recovered/Not Resolved]
  - Behaviour disorder [Unknown]
  - Eye pruritus [Unknown]

NARRATIVE: CASE EVENT DATE: 20210101
